FAERS Safety Report 9766159 (Version 2)
Quarter: 2014Q2

REPORT INFORMATION
  Report Type: Spontaneous
  Country: HR (occurrence: HR)
  Receive Date: 20131217
  Receipt Date: 20140409
  Transmission Date: 20141212
  Serious: Yes (Hospitalization, Other)
  Sender: FDA-Public Use
  Company Number: HR-JNJFOC-20131205623

PATIENT
  Age: 37 Year
  Sex: Male

DRUGS (5)
  1. RISPOLEPT CONSTA [Suspect]
     Indication: BIPOLAR DISORDER
     Route: 030
     Dates: start: 201302, end: 201309
  2. RISSET [Suspect]
     Indication: PRODUCT USED FOR UNKNOWN INDICATION
     Dosage: 2 MG IN THE EVENING
     Route: 048
  3. LEVOPROMAZINE [Suspect]
     Indication: PRODUCT USED FOR UNKNOWN INDICATION
     Route: 065
  4. DIAZEPAM [Concomitant]
     Indication: PRODUCT USED FOR UNKNOWN INDICATION
     Dosage: 1 MG IN THE MORNING 2 MG IN THE AFTERNOON2 MG IN THE EVENING
     Route: 065
  5. LITHIUM [Concomitant]
     Indication: PRODUCT USED FOR UNKNOWN INDICATION
     Dosage: 1 IN THE MORNING, 1 IN THE AFTER NOON AND 2 IN THE EVENING.
     Route: 065

REACTIONS (5)
  - Joint dislocation [Not Recovered/Not Resolved]
  - Suicide attempt [Recovered/Resolved]
  - Psychotic disorder [Recovered/Resolved]
  - Foot fracture [Not Recovered/Not Resolved]
  - Infection [Unknown]
